FAERS Safety Report 17318108 (Version 1)
Quarter: 2020Q1

REPORT INFORMATION
  Report Type: Spontaneous
  Country: BR (occurrence: BR)
  Receive Date: 20200124
  Receipt Date: 20200124
  Transmission Date: 20200409
  Serious: Yes (Other)
  Sender: FDA-Public Use
  Company Number: BR-ASTRAZENECA-2020SE10498

PATIENT
  Age: 18983 Day
  Sex: Female
  Weight: 54 kg

DRUGS (9)
  1. ECASIL 81 [Concomitant]
     Indication: OROPHARYNGEAL DISCOMFORT
     Dosage: UNKNOWN
     Route: 065
  2. PRESSAT [Concomitant]
     Active Substance: AMLODIPINE BESYLATE
     Dosage: 2.5MG UNKNOWN
     Route: 065
  3. RIVOTRIL [Concomitant]
     Active Substance: CLONAZEPAM
     Dosage: 12.0MG UNKNOWN
     Route: 065
  4. ROSUVASTATIN. [Suspect]
     Active Substance: ROSUVASTATIN
     Dosage: 10.0MG UNKNOWN
     Route: 048
  5. XIGDUO XR [Suspect]
     Active Substance: DAPAGLIFLOZIN PROPANEDIOL\METFORMIN HYDROCHLORIDE
     Indication: DIABETES MELLITUS
     Dosage: 10/1000 MG, 1 TABLET AT NIGHT
     Route: 048
     Dates: start: 20191101
  6. ECASIL 81 [Concomitant]
     Indication: EPISTAXIS
     Dosage: UNKNOWN
     Route: 065
  7. ECASIL 81 [Concomitant]
     Indication: HAEMORRHAGE
     Dosage: UNKNOWN
     Route: 065
  8. PURAN [Concomitant]
     Active Substance: LEVOTHYROXINE SODIUM
     Dosage: 1 TABLET IN FASTING
     Route: 065
  9. LOSARTANA [Concomitant]
     Active Substance: LOSARTAN
     Dosage: 1 TABLET IN THE MORNING AND 1 AT NIGHT
     Route: 065

REACTIONS (5)
  - Intestinal obstruction [Not Recovered/Not Resolved]
  - Haematochezia [Not Recovered/Not Resolved]
  - Abnormal faeces [Not Recovered/Not Resolved]
  - Weight decreased [Not Recovered/Not Resolved]
  - Dry mouth [Not Recovered/Not Resolved]

NARRATIVE: CASE EVENT DATE: 20191104
